FAERS Safety Report 9231474 (Version 2)
Quarter: 2013Q2

REPORT INFORMATION
  Report Type: Spontaneous
  Country: US (occurrence: US)
  Receive Date: 20130415
  Receipt Date: 20130515
  Transmission Date: 20140414
  Serious: Yes (Hospitalization)
  Sender: FDA-Public Use
  Company Number: US-GLAXOSMITHKLINE-A1019295A

PATIENT
  Sex: Female

DRUGS (5)
  1. ADVAIR [Suspect]
     Indication: CHRONIC OBSTRUCTIVE PULMONARY DISEASE
     Dosage: 1PUFF TWICE PER DAY
     Route: 055
     Dates: start: 201203
  2. SINGULAIR [Concomitant]
  3. AMLODIPINE [Concomitant]
  4. LISINOPRIL [Concomitant]
  5. PRAVASTATIN [Concomitant]

REACTIONS (6)
  - Bronchopneumonia [Recovering/Resolving]
  - Pneumonia pseudomonas aeruginosa [Unknown]
  - Myocardial infarction [Unknown]
  - Asthma [Recovering/Resolving]
  - Treatment noncompliance [Unknown]
  - Product quality issue [Unknown]
